FAERS Safety Report 9097394 (Version 1)
Quarter: 2013Q1

REPORT INFORMATION
  Report Type: Spontaneous
  Country: CA (occurrence: CA)
  Receive Date: 20130212
  Receipt Date: 20130212
  Transmission Date: 20140127
  Serious: Yes (Other)
  Sender: FDA-Public Use
  Company Number: CA-ELI_LILLY_AND_COMPANY-CA201302000480

PATIENT
  Age: 61 Year
  Sex: Female

DRUGS (14)
  1. FORTEO [Suspect]
     Indication: OSTEOPOROSIS
     Dosage: 20 UG, QD
     Route: 058
     Dates: start: 20110916
  2. NITROLINGUAL [Concomitant]
     Dosage: UNK, UNKNOWN
     Route: 065
  3. FENTANYL [Concomitant]
     Dosage: UNK, UNKNOWN
     Route: 065
  4. VITAMIN D [Concomitant]
     Dosage: UNK, UNKNOWN
     Route: 065
  5. CALCIUM [Concomitant]
     Dosage: UNK, UNKNOWN
     Route: 065
  6. LYRICA [Concomitant]
     Dosage: UNK, UNKNOWN
     Route: 065
  7. URSO [Concomitant]
     Dosage: UNK, UNKNOWN
     Route: 065
  8. RENEDIL [Concomitant]
     Dosage: UNK, UNKNOWN
     Route: 065
  9. SYNTHROID [Concomitant]
     Dosage: UNK, UNKNOWN
     Route: 065
  10. PANTOLOC                           /01263204/ [Concomitant]
     Dosage: UNK, UNKNOWN
     Route: 065
  11. VITAMIN B12 [Concomitant]
     Dosage: UNK, UNKNOWN
     Route: 065
  12. ASA [Concomitant]
     Dosage: UNK, UNKNOWN
     Route: 065
  13. SPIRIVA [Concomitant]
     Dosage: UNK, UNKNOWN
     Route: 065
  14. TRACLEER [Concomitant]
     Dosage: UNK, UNKNOWN
     Route: 065

REACTIONS (2)
  - Gastroenteritis [Recovered/Resolved]
  - Intestinal ulcer [Recovered/Resolved]
